FAERS Safety Report 8568800-4 (Version None)
Quarter: 2012Q3

REPORT INFORMATION
  Report Type: 
  Country: None (occurrence: None)
  Receive Date: 20120803
  Receipt Date: 20120628
  Transmission Date: 20120928
  Serious: No
  Sender: FDA-Public Use
  Company Number: US-ABBOTT-12P-163-0951233-00

PATIENT
  Sex: Female

DRUGS (13)
  1. CELEBREX [Concomitant]
     Indication: PRODUCT USED FOR UNKNOWN INDICATION
  2. SINEMET [Concomitant]
     Indication: PARKINSON'S DISEASE
     Dosage: 25/125 MILLIGRAMS, 3 IN 1 DAYS
  3. EFFEXOR [Concomitant]
     Indication: PRODUCT USED FOR UNKNOWN INDICATION
  4. CYCLOBENZAPRINE [Concomitant]
     Indication: PRODUCT USED FOR UNKNOWN INDICATION
  5. DONPEZIL [Concomitant]
     Indication: PRODUCT USED FOR UNKNOWN INDICATION
  6. PRAVASTATIN [Concomitant]
     Indication: PRODUCT USED FOR UNKNOWN INDICATION
  7. EFFEXOR [Concomitant]
  8. DEXILANT [Concomitant]
     Indication: GASTROOESOPHAGEAL REFLUX DISEASE
  9. NUVIGIL [Concomitant]
     Indication: NARCOLEPSY
     Dosage: 150MG DAILY
  10. METOPROLOL TARTRATE [Concomitant]
     Indication: HEART RATE INCREASED
  11. SYNTHROID [Concomitant]
     Indication: PRODUCT USED FOR UNKNOWN INDICATION
  12. NIASPAN [Suspect]
     Indication: HIGH DENSITY LIPOPROTEIN INCREASED
  13. NIASPAN [Suspect]
     Indication: BLOOD CHOLESTEROL INCREASED

REACTIONS (3)
  - FLUSHING [None]
  - PRURITUS [None]
  - RASH [None]
